FAERS Safety Report 17819105 (Version 3)
Quarter: 2020Q3

REPORT INFORMATION
  Report Type: Report from Study
  Country: FR (occurrence: FR)
  Receive Date: 20200523
  Receipt Date: 20200701
  Transmission Date: 20201102
  Serious: Yes (Other)
  Sender: FDA-Public Use
  Company Number: PHHY2019FR226711

PATIENT
  Sex: Female
  Weight: 42.3 kg

DRUGS (2)
  1. SOMATROPIN. [Suspect]
     Active Substance: SOMATROPIN
     Dosage: 2 MG, UNKNOWN (15MG/1.5ML SOLUTION FOR INJECTION)
     Route: 065
     Dates: start: 20181113
  2. SOMATROPIN. [Suspect]
     Active Substance: SOMATROPIN
     Indication: SMALL FOR DATES BABY
     Dosage: 0.046 MG, (15 MG/1.5 ML SOLUTION FOR INJECTION), UNKNOWN
     Route: 058
     Dates: start: 20170102, end: 20200505

REACTIONS (2)
  - Hypothyroidism [Not Recovered/Not Resolved]
  - Melanocytic naevus [Not Recovered/Not Resolved]

NARRATIVE: CASE EVENT DATE: 20190504
